FAERS Safety Report 20479630 (Version 1)
Quarter: 2022Q1

REPORT INFORMATION
  Report Type: Spontaneous
  Country: US (occurrence: None)
  Receive Date: 20220215
  Receipt Date: 20220215
  Transmission Date: 20220423
  Serious: No
  Sender: FDA-Public Use
  Company Number: None

PATIENT
  Sex: Female

DRUGS (1)
  1. OTEZLA [Suspect]
     Active Substance: APREMILAST
     Indication: Psoriasis
     Dosage: 30MG TWICE BY MOUTH?
     Route: 048
     Dates: start: 20210105

REACTIONS (3)
  - Dyspnoea [None]
  - Stomatitis [None]
  - Hypophagia [None]
